FAERS Safety Report 5422688-9 (Version None)
Quarter: 2007Q3

REPORT INFORMATION
  Report Type: 
  Country: None (occurrence: None)
  Receive Date: 20070730
  Receipt Date: 20060828
  Transmission Date: 20080115
  Serious: Yes (Other)
  Sender: FDA-Public Use
  Company Number: 200614581BWH

PATIENT
  Age: 37 Year
  Sex: Female
  Weight: 63.5036 kg

DRUGS (3)
  1. AVELOX [Suspect]
     Indication: UPPER RESPIRATORY TRACT INFECTION
     Dosage: 400 MG, QD, ORAL
     Route: 048
     Dates: start: 20060101
  2. SYNTHROID [Concomitant]
  3. ADVAIR DISKUS 100/50 [Concomitant]

REACTIONS (4)
  - ANAPHYLACTIC REACTION [None]
  - DYSPNOEA [None]
  - PRURITUS [None]
  - RASH [None]
